FAERS Safety Report 5639307-9 (Version None)
Quarter: 2008Q1

REPORT INFORMATION
  Report Type: 
  Country: None (occurrence: None)
  Receive Date: 20080226
  Receipt Date: 20080214
  Transmission Date: 20080703
  Serious: Yes (Other)
  Sender: FDA-Public Use
  Company Number: US-PFIZER INC-2008014881

PATIENT
  Sex: Female
  Weight: 90.7 kg

DRUGS (5)
  1. LYRICA [Suspect]
     Indication: FIBROMYALGIA
  2. CYMBALTA [Suspect]
     Indication: DEPRESSION
  3. ORAL CONTRACEPTIVE NOS [Concomitant]
  4. LORTAB [Concomitant]
  5. DARVOCET [Concomitant]

REACTIONS (1)
  - CONVULSION [None]
